FAERS Safety Report 11473731 (Version 1)
Quarter: 2015Q3

REPORT INFORMATION
  Report Type: Spontaneous
  Country: US (occurrence: None)
  Receive Date: 20150908
  Receipt Date: 20150908
  Transmission Date: 20151125
  Serious: Yes (Hospitalization)
  Sender: FDA-Public Use
  Company Number: None

PATIENT
  Age: 62 Year
  Sex: Female
  Weight: 103 kg

DRUGS (2)
  1. RIBAVIRIN 600MG GENENTECH [Suspect]
     Active Substance: RIBAVIRIN
     Dosage: 600 MG: 400MG/200MG PM
     Route: 048
     Dates: start: 20140624, end: 20150820
  2. HARVONI [Suspect]
     Active Substance: LEDIPASVIR\SOFOSBUVIR
     Route: 048
     Dates: start: 20150624

REACTIONS (4)
  - Vomiting [None]
  - Peritonitis bacterial [None]
  - Nausea [None]
  - Anaemia [None]

NARRATIVE: CASE EVENT DATE: 20150814
